FAERS Safety Report 6149055-7 (Version None)
Quarter: 2009Q2

REPORT INFORMATION
  Report Type: 
  Country: None (occurrence: None)
  Receive Date: 20090409
  Receipt Date: 20090331
  Transmission Date: 20091009
  Serious: Yes (Other)
  Sender: FDA-Public Use
  Company Number: US-PFIZER INC-2006087521

PATIENT
  Sex: Female
  Weight: 93 kg

DRUGS (9)
  1. PROVERA [Suspect]
     Indication: HORMONE REPLACEMENT THERAPY
     Dosage: UNK
     Route: 048
     Dates: start: 19970901, end: 19980401
  2. MEDROXYPROGESTERONE AND MEDROXYPROGESTERONE ACETATE [Suspect]
     Indication: HORMONE REPLACEMENT THERAPY
     Dosage: UNK
     Route: 048
     Dates: start: 19970901, end: 19980401
  3. PREMARIN [Suspect]
     Indication: HORMONE REPLACEMENT THERAPY
     Dosage: UNK
     Route: 065
     Dates: start: 19850101, end: 19980101
  4. PREMPRO [Suspect]
     Indication: HORMONE REPLACEMENT THERAPY
     Dosage: UNK
     Route: 065
     Dates: start: 19980101, end: 20000101
  5. CYCRIN [Suspect]
     Indication: HORMONE REPLACEMENT THERAPY
     Dosage: UNK
     Route: 065
     Dates: start: 19960801, end: 19970901
  6. ZOLOFT [Concomitant]
     Indication: ANXIETY
     Dosage: UNK
     Dates: start: 19980101
  7. ZOLOFT [Concomitant]
     Indication: DEPRESSION
  8. NAPROXEN [Concomitant]
     Indication: ARTHRITIS
     Dosage: 220 MG, 1X/DAY
     Dates: start: 19900101, end: 20060101
  9. ACETYLSALICYLIC ACID [Concomitant]
     Indication: ARTHRITIS
     Dosage: UNK
     Dates: start: 19800101, end: 20030101

REACTIONS (1)
  - BREAST CANCER FEMALE [None]
